FAERS Safety Report 23626046 (Version 1)
Quarter: 2024Q1

REPORT INFORMATION
  Report Type: Spontaneous
  Country: US (occurrence: US)
  Receive Date: 20240313
  Receipt Date: 20240313
  Transmission Date: 20240410
  Serious: No
  Sender: FDA-Public Use
  Company Number: US-ABBVIE-5671384

PATIENT
  Sex: Female

DRUGS (3)
  1. KYBELLA [Suspect]
     Active Substance: DEOXYCHOLIC ACID
     Indication: Fat tissue increased
     Route: 065
     Dates: start: 20240208
  2. RADIESSE [Concomitant]
     Active Substance: TRIBASIC CALCIUM PHOSPHATE
     Indication: Product used for unknown indication
  3. MEDROL [Concomitant]
     Active Substance: METHYLPREDNISOLONE
     Indication: Product used for unknown indication

REACTIONS (5)
  - Autoimmune disorder [Unknown]
  - Cushingoid [Unknown]
  - Fat tissue increased [Unknown]
  - Rheumatoid arthritis [Unknown]
  - Swelling [Unknown]

NARRATIVE: CASE EVENT DATE: 20240101
